FAERS Safety Report 11867200 (Version 1)
Quarter: 2015Q4

REPORT INFORMATION
  Report Type: Spontaneous
  Country: US (occurrence: None)
  Receive Date: 20151223
  Receipt Date: 20151223
  Transmission Date: 20160305
  Serious: Yes (Hospitalization)
  Sender: FDA-Public Use
  Company Number: None

PATIENT
  Age: 85 Year
  Sex: Male
  Weight: 79.3 kg

DRUGS (1)
  1. SULFAMETHOXAZOLE/TRIMETHOPRIM [Suspect]
     Active Substance: SULFAMETHOXAZOLE\TRIMETHOPRIM
     Indication: CELLULITIS
     Route: 048
     Dates: start: 20151118, end: 20151128

REACTIONS (5)
  - Drug eruption [None]
  - Acute kidney injury [None]
  - Pemphigoid [None]
  - Hepatic enzyme increased [None]
  - Rash maculo-papular [None]

NARRATIVE: CASE EVENT DATE: 20151123
